FAERS Safety Report 9700087 (Version 2)
Quarter: 2014Q1

REPORT INFORMATION
  Report Type: Spontaneous
  Country: US (occurrence: US)
  Receive Date: 20131121
  Receipt Date: 20140130
  Transmission Date: 20141002
  Serious: Yes (Other)
  Sender: FDA-Public Use
  Company Number: US-JNJFOC-20131101309

PATIENT
  Age: 81 Year
  Sex: Female
  Weight: 58.97 kg

DRUGS (2)
  1. TYLENOL REGULAR STRENGTH [Suspect]
     Route: 048
  2. TYLENOL REGULAR STRENGTH [Suspect]
     Indication: PRODUCT USED FOR UNKNOWN INDICATION
     Dosage: 2 TABLETS EVERY 4 HOURS
     Route: 048

REACTIONS (1)
  - Blood urine present [Unknown]
